FAERS Safety Report 7901308-5 (Version None)
Quarter: 2011Q4

REPORT INFORMATION
  Report Type: 
  Country: None (occurrence: None)
  Receive Date: 20111108
  Receipt Date: 20111104
  Transmission Date: 20120403
  Serious: No
  Sender: FDA-Public Use
  Company Number: PHEH2011US008754

PATIENT
  Weight: 83.9 kg

DRUGS (14)
  1. METOPROLOL [Concomitant]
     Dosage: UNK UKN, UNK
  2. ANDROGEL [Concomitant]
     Dosage: UNK UKN, UNK
  3. ZOCOR [Concomitant]
     Dosage: UNK UKN, UNK
  4. CELEBREX [Concomitant]
     Dosage: UNK UKN, UNK
  5. MULTI-VITAMINS [Concomitant]
     Dosage: UNK UKN, UNK
  6. PREDNISONE [Concomitant]
     Dosage: UNK UKN, UNK
  7. NIZATIDINE [Concomitant]
     Dosage: UNK UKN, UNK
  8. ALENDRONATE SODIUM [Concomitant]
     Dosage: UNK UKN, UNK
  9. SERTRALINE HYDROCHLORIDE [Concomitant]
     Dosage: UNK UKN, UNK
  10. DIAZEPAM [Concomitant]
     Dosage: UNK UKN, UNK
  11. CLEARASIL [Concomitant]
     Dosage: UNK UKN, UNK
  12. CALCIUM CITRATE [Concomitant]
     Dosage: UNK UKN, UNK
  13. LYRICA [Concomitant]
     Dosage: UNK UKN, UNK
  14. TASIGNA [Suspect]
     Indication: CHRONIC MYELOID LEUKAEMIA
     Dosage: 300 MG, Q12H
     Route: 048
     Dates: start: 20110801

REACTIONS (2)
  - DIARRHOEA [None]
  - DIZZINESS [None]
